FAERS Safety Report 4840341-7 (Version None)
Quarter: 2005Q4

REPORT INFORMATION
  Report Type: 
  Country: None (occurrence: None)
  Receive Date: 20051025
  Receipt Date: 20041213
  Transmission Date: 20060501
  Serious: Yes (Hospitalization)
  Sender: FDA-Public Use
  Company Number: HQWYE972415DEC04

PATIENT
  Age: 62 Year
  Sex: Male

DRUGS (3)
  1. RAPAMUNE [Suspect]
     Indication: TRANSPLANT
     Dosage: 0.5 MG 1X PER 1 DAY
     Dates: start: 20041001, end: 20041014
  2. RAPAMUNE [Suspect]
     Dosage: 1 MG 1X PER 1 DAY,ORAL
     Route: 048
     Dates: start: 20041015
  3. CYCLOSPORINE [Concomitant]

REACTIONS (2)
  - THROMBOSIS [None]
  - WEIGHT INCREASED [None]
